FAERS Safety Report 7542371-3 (Version None)
Quarter: 2011Q2

REPORT INFORMATION
  Report Type: 
  Country: None (occurrence: None)
  Receive Date: 20110613
  Receipt Date: 20110610
  Transmission Date: 20111010
  Serious: Yes (Hospitalization, Other)
  Sender: FDA-Public Use
  Company Number: US-PFIZER INC-2011127656

PATIENT
  Age: 92 Year
  Sex: Female
  Weight: 48.073 kg

DRUGS (1)
  1. TIKOSYN [Suspect]
     Indication: ATRIAL FIBRILLATION
     Dosage: 250 UG, 2X/DAY
     Route: 048

REACTIONS (3)
  - PNEUMONIA [None]
  - RENAL IMPAIRMENT [None]
  - WEIGHT DECREASED [None]
